FAERS Safety Report 4388185-7 (Version None)
Quarter: 2004Q3

REPORT INFORMATION
  Report Type: 
  Country: None (occurrence: None)
  Receive Date: 20040701
  Receipt Date: 20040528
  Transmission Date: 20050211
  Serious: Yes (Death, Other)
  Sender: FDA-Public Use
  Company Number: PHEH2004US05937

PATIENT
  Age: 89 Year
  Sex: Male

DRUGS (14)
  1. ZOMETA [Suspect]
     Indication: METASTASES TO BONE
     Dosage: 4 MG MONTHLY (ONE TIME DOSE)
     Route: 042
     Dates: start: 20040428, end: 20040428
  2. PROTONIX [Concomitant]
     Dosage: 40 MG, QD
  3. DIGOXIN [Concomitant]
     Dosage: .125 MG, QD
  4. FUROSEMIDE [Concomitant]
     Dosage: 40 MG, QD
  5. PLAVIX [Concomitant]
     Dosage: 75 MG, QD
  6. ALTACE [Concomitant]
     Dosage: 2.5 MG, QHS
  7. NITRO-BID [Concomitant]
     Dosage: UNK, BID
  8. PERCOCET [Concomitant]
     Dosage: 325 MG, BID
  9. LOPRESSOR [Concomitant]
     Dosage: 25 MG, BID
  10. DURAGESIC [Concomitant]
  11. SENOKOT [Concomitant]
     Dosage: QD PRN
  12. LIPITOR [Concomitant]
     Dosage: 10 MG, QHS
  13. IMDUR [Concomitant]
     Dosage: 60 MG, QHS
  14. ASPIRIN [Concomitant]
     Dosage: UNK, QD

REACTIONS (18)
  - ARRHYTHMIA [None]
  - ASPARTATE AMINOTRANSFERASE INCREASED [None]
  - ASTHENIA [None]
  - BLOOD ALBUMIN DECREASED [None]
  - BLOOD ALKALINE PHOSPHATASE INCREASED [None]
  - BLOOD BILIRUBIN INCREASED [None]
  - BLOOD CALCIUM DECREASED [None]
  - BLOOD CREATINE PHOSPHOKINASE INCREASED [None]
  - BLOOD GLUCOSE INCREASED [None]
  - BLOOD MAGNESIUM DECREASED [None]
  - BLOOD POTASSIUM DECREASED [None]
  - CARDIAC ARREST [None]
  - FEELING ABNORMAL [None]
  - INFECTION [None]
  - PCO2 DECREASED [None]
  - PROTEIN TOTAL DECREASED [None]
  - VENTRICULAR FIBRILLATION [None]
  - WHITE BLOOD CELL COUNT INCREASED [None]
